FAERS Safety Report 25589996 (Version 2)
Quarter: 2025Q3

REPORT INFORMATION
  Report Type: Spontaneous
  Country: US (occurrence: US)
  Receive Date: 20250722
  Receipt Date: 20250910
  Transmission Date: 20251021
  Serious: Yes (Hospitalization, Other)
  Sender: NOVO NORDISK
  Company Number: US-NOVOPROD-1479581

PATIENT
  Age: 54 Year
  Sex: Female

DRUGS (1)
  1. TRESIBA [Suspect]
     Active Substance: INSULIN DEGLUDEC
     Indication: Type 2 diabetes mellitus
     Dosage: 58 IU, QD
     Route: 058
     Dates: start: 2005

REACTIONS (5)
  - Device leakage [Unknown]
  - Hyperglycaemia [Not Recovered/Not Resolved]
  - Product dose omission issue [Unknown]
  - Pneumonia [Recovered/Resolved]
  - Wrong technique in product usage process [Not Recovered/Not Resolved]

NARRATIVE: CASE EVENT DATE: 20250610
